FAERS Safety Report 10717474 (Version 3)
Quarter: 2015Q1

REPORT INFORMATION
  Report Type: Spontaneous
  Country: CL (occurrence: CL)
  Receive Date: 20150116
  Receipt Date: 20150326
  Transmission Date: 20150721
  Serious: Yes (Hospitalization, Other)
  Sender: FDA-Public Use
  Company Number: CL-PFIZER INC-2015017230

PATIENT
  Age: 43 Year
  Sex: Male

DRUGS (17)
  1. FENTANYL. [Concomitant]
     Active Substance: FENTANYL
     Dosage: 1 GAMMA/KG/MINUTE
     Route: 042
  2. ISOSORBIDE [Concomitant]
     Active Substance: ISOSORBIDE
     Dosage: 10 MG, 3X/DAY
  3. HYDROCORTISONE. [Concomitant]
     Active Substance: HYDROCORTISONE
     Dosage: 50 MG, 2X/DAY
     Route: 042
  4. METAMIZOLE [Concomitant]
     Active Substance: METAMIZOLE
     Dosage: 4 G, 1X/DAY
     Route: 042
  5. PROPOFOL. [Concomitant]
     Active Substance: PROPOFOL
     Dosage: 2 MG/KG, HOUR
     Route: 042
  6. CEFTRIAXONE. [Concomitant]
     Active Substance: CEFTRIAXONE
     Dosage: 2 G, 1X/DAY
     Route: 042
  7. PARACETAMOL [Concomitant]
     Active Substance: ACETAMINOPHEN
     Dosage: 1 G, 3X/DAY
  8. TIGECYCLINE [Suspect]
     Active Substance: TIGECYCLINE
     Indication: ACINETOBACTER TEST POSITIVE
     Dosage: 100 MG, 2X/DAY
     Route: 042
     Dates: start: 20141215, end: 20141229
  9. FUROSEMIDE. [Concomitant]
     Active Substance: FUROSEMIDE
     Dosage: 5 MG, 4X/DAY
     Route: 042
  10. DALTEPARIN [Concomitant]
     Active Substance: DALTEPARIN
     Dosage: 5000 IU, 1X/DAY
     Route: 058
  11. DROPERIDOL. [Concomitant]
     Active Substance: DROPERIDOL
     Dosage: 0.1 MG, HOUR
     Route: 042
  12. TRAMAL [Concomitant]
     Active Substance: TRAMADOL
     Dosage: 300 MG, 1X/DAY
     Route: 042
  13. SERTRALINE [Concomitant]
     Active Substance: SERTRALINE HYDROCHLORIDE
     Dosage: 50 MG, 1X/DAY
  14. LANZOPRAZOL ALFA [Concomitant]
     Dosage: 30 MG, 1X/DAY
     Route: 042
  15. MIDAZOLAM [Concomitant]
     Active Substance: MIDAZOLAM\MIDAZOLAM HYDROCHLORIDE
     Dosage: 0.1 MG/KG, HOUR
     Route: 042
  16. NITRENDIPINE [Concomitant]
     Active Substance: NITRENDIPINE
     Dosage: 20 MG, 2X/DAY
  17. QUETIAPINE [Concomitant]
     Active Substance: QUETIAPINE
     Dosage: 50 MG, 2X/DAY

REACTIONS (4)
  - Drug ineffective [Recovered/Resolved]
  - Tracheobronchitis [Recovered/Resolved]
  - Skin infection [Recovered/Resolved]
  - Bacteraemia [Recovered/Resolved]

NARRATIVE: CASE EVENT DATE: 20141224
